FAERS Safety Report 23697549 (Version 2)
Quarter: 2024Q2

REPORT INFORMATION
  Report Type: Spontaneous
  Country: US (occurrence: US)
  Receive Date: 20240402
  Receipt Date: 20240404
  Transmission Date: 20240716
  Serious: No
  Sender: FDA-Public Use
  Company Number: US-ABBVIE-5696311

PATIENT
  Age: 43 Year
  Sex: Female
  Weight: 84.821 kg

DRUGS (4)
  1. VRAYLAR [Suspect]
     Active Substance: CARIPRAZINE
     Indication: Obsessive-compulsive disorder
     Dosage: FORM STRENGTH: 1.5 MILLIGRAM
     Route: 048
     Dates: start: 202309, end: 202401
  2. LUVOX [Concomitant]
     Active Substance: FLUVOXAMINE MALEATE
     Indication: Obsessive-compulsive disorder
  3. GABAPENTIN [Concomitant]
     Active Substance: GABAPENTIN
     Indication: Obsessive-compulsive disorder
  4. CLONOPIN [Concomitant]
     Active Substance: CLONAZEPAM
     Indication: Obsessive-compulsive disorder

REACTIONS (4)
  - Increased appetite [Recovering/Resolving]
  - Weight increased [Not Recovered/Not Resolved]
  - Off label use [Not Recovered/Not Resolved]
  - Drug effective for unapproved indication [Unknown]

NARRATIVE: CASE EVENT DATE: 20230901
